FAERS Safety Report 9079493 (Version 1)
Quarter: 2013Q1

REPORT INFORMATION
  Report Type: Spontaneous
  Country: US (occurrence: US)
  Receive Date: 20130130
  Receipt Date: 20130130
  Transmission Date: 20140127
  Serious: Yes (Hospitalization)
  Sender: FDA-Public Use
  Company Number: US-NOVEN-13US005998

PATIENT
  Age: 31 Year
  Sex: Male

DRUGS (1)
  1. DAYTRANA [Suspect]
     Indication: PRODUCT USED FOR UNKNOWN INDICATION
     Dosage: UNK
     Route: 048

REACTIONS (4)
  - Chest pain [Not Recovered/Not Resolved]
  - Dyskinesia [Not Recovered/Not Resolved]
  - Incorrect route of drug administration [Not Recovered/Not Resolved]
  - Off label use [Not Recovered/Not Resolved]
